FAERS Safety Report 4306692-X (Version None)
Quarter: 2004Q1

REPORT INFORMATION
  Report Type: 
  Country: None (occurrence: None)
  Receive Date: 20040225
  Receipt Date: 20031201
  Transmission Date: 20041129
  Serious: Yes (Other)
  Sender: FDA-Public Use
  Company Number: US-BRISTOL-MYERS SQUIBB COMPANY-12446399

PATIENT
  Sex: Female

DRUGS (1)
  1. EXCEDRIN (MIGRAINE) [Suspect]
     Indication: DEPRESSION
     Route: 048
     Dates: start: 20031201, end: 20031201

REACTIONS (2)
  - NERVOUSNESS [None]
  - OVERDOSE [None]
